FAERS Safety Report 15552171 (Version 1)
Quarter: 2018Q4

REPORT INFORMATION
  Report Type: Report from Study
  Country: ES (occurrence: ES)
  Receive Date: 20181025
  Receipt Date: 20181025
  Transmission Date: 20190205
  Serious: Yes (Death, Hospitalization, Other)
  Sender: FDA-Public Use
  Company Number: ES-TEVA-2018-ES-968339

PATIENT
  Age: 75 Year
  Sex: Female

DRUGS (6)
  1. METAMIZOL [Concomitant]
     Active Substance: METAMIZOLE SODIUM
     Dosage: DOSAGE UNIT FREQUENCY: 1725 MG-MILLIGRAMS, , NO. SHOTS PER FREQUENCY UNIT: 3, FREQUENCY UNIT: 1 DAY
     Route: 048
     Dates: start: 2015, end: 20150918
  2. TRAMADOL HIDROCLORURO [Suspect]
     Active Substance: TRAMADOL HYDROCHLORIDE
     Dosage: DOSAGE UNIT FREQUENCY: 150 MG-MILLIGRAMS, NO. SHOTS PER FREQUENCY UNIT: 3, FREQUENCY UNIT: 1 DAY
     Route: 048
     Dates: start: 2015, end: 20150918
  3. SIMVASTATINA [Interacting]
     Active Substance: SIMVASTATIN
     Indication: HYPERCHOLESTEROLAEMIA
     Dosage: 20 MILLIGRAM DAILY; DOSAGE UNIT FREQUENCY: 60 MG-MILLIGRAMS,  NO. SHOTS PER FREQUENCY UNIT: 3, FREQU
     Route: 048
     Dates: start: 2013, end: 20150918
  4. ALOPURINOL [Interacting]
     Active Substance: ALLOPURINOL
     Dosage: 100 MILLIGRAM DAILY;
     Route: 048
     Dates: start: 2015, end: 20150918
  5. SINTROM [Interacting]
     Active Substance: ACENOCOUMAROL
     Indication: VALVULOPLASTY CARDIAC
     Route: 048
     Dates: start: 2013
  6. OMEPRAZOL [Interacting]
     Active Substance: OMEPRAZOLE
     Dosage: 20 MILLIGRAM DAILY;
     Route: 048
     Dates: start: 2013, end: 20150918

REACTIONS (2)
  - Cerebral haemorrhage [Fatal]
  - Drug interaction [Unknown]

NARRATIVE: CASE EVENT DATE: 20150918
